FAERS Safety Report 16353217 (Version 1)
Quarter: 2019Q2

REPORT INFORMATION
  Report Type: Spontaneous
  Country: GB (occurrence: GB)
  Receive Date: 20190524
  Receipt Date: 20190524
  Transmission Date: 20190711
  Serious: Yes (Other)
  Sender: FDA-Public Use
  Company Number: GB-MYLANLABS-2019M1040027

PATIENT
  Age: 43 Year
  Sex: Female
  Weight: 64 kg

DRUGS (13)
  1. MOMETASONE [Concomitant]
     Active Substance: MOMETASONE
     Dosage: 2 DOSAGE FORM, QD(PUFFS EACH NOSTRIL)
     Route: 045
     Dates: start: 20170619
  2. ELLESTE DUET 2 MG TABLETS [Suspect]
     Active Substance: ESTRADIOL\NORETHINDRONE ACETATE
     Indication: PRODUCT USED FOR UNKNOWN INDICATION
     Dosage: 1 DOSAGE FORM, QD
     Route: 065
     Dates: start: 20181018
  3. MIRTAZAPINE. [Concomitant]
     Active Substance: MIRTAZAPINE
     Dosage: 1/2 AT NIGHT
     Dates: start: 20170619
  4. FOSTAIR [Concomitant]
     Active Substance: BECLOMETHASONE\FORMOTEROL
     Dosage: 4 DOSAGE FORM, QD
     Route: 055
     Dates: start: 20180806
  5. DOXYCYCLINE. [Concomitant]
     Active Substance: DOXYCYCLINE
     Dosage: 2 DOSAGE FORM(AS A SINGLE DOSE ON THE FIRST)
     Dates: start: 20181018, end: 20181023
  6. AMOXIL [Concomitant]
     Active Substance: AMOXICILLIN
     Dosage: 3 DOSAGE FORM, QD
     Dates: start: 20180919, end: 20180924
  7. PREDNISOLONE. [Concomitant]
     Active Substance: PREDNISOLONE
     Dosage: 6 DOSAGE FORM, QD
     Dates: start: 20181018, end: 20181023
  8. VENTOLIN [Concomitant]
     Active Substance: ALBUTEROL SULFATE
     Dosage: UNK, PRN(4 TIMES A DAY )
     Route: 065
     Dates: start: 20170619
  9. FEMSEVEN                           /00045401/ [Concomitant]
     Active Substance: ESTRADIOL\LEVONORGESTREL
     Dosage: 1 DOSAGE FORM, QW(APPLY)
     Dates: start: 20181001, end: 20181029
  10. MONTELUKAST [Concomitant]
     Active Substance: MONTELUKAST SODIUM
     Dosage: 1 DOSAGE FORM, QD(AT NIGHT)
     Dates: start: 20170619
  11. ELLESTE DUET 2 MG TABLETS [Suspect]
     Active Substance: ESTRADIOL\NORETHINDRONE ACETATE
     Dosage: 2 MILLIGRAM
     Route: 065
     Dates: start: 20181108
  12. CITALOPRAM [Concomitant]
     Active Substance: CITALOPRAM HYDROBROMIDE
     Dosage: 1 DOSAGE FORM, QD
     Dates: start: 20170619
  13. EVOREL [Concomitant]
     Dosage: 2 DOSAGE FORM, QW(APPLY PATCH)
     Dates: start: 20180109

REACTIONS (3)
  - Suicidal ideation [Recovering/Resolving]
  - Depressed mood [Recovering/Resolving]
  - Anxiety [Recovering/Resolving]

NARRATIVE: CASE EVENT DATE: 20181108
